FAERS Safety Report 8620626-9 (Version None)
Quarter: 2012Q3

REPORT INFORMATION
  Report Type: 
  Country: None (occurrence: None)
  Receive Date: 20120824
  Receipt Date: 20120723
  Transmission Date: 20120928
  Serious: Yes (Life-Threatening, Hospitalization, Other)
  Sender: FDA-Public Use
  Company Number: US-ROXANE LABORATORIES, INC.-2012-EU-03710GD

PATIENT
  Age: 59 Year
  Sex: Male

DRUGS (2)
  1. PREDNISONE TAB [Suspect]
     Indication: COLITIS ULCERATIVE
     Dosage: HIGH-DOSE
     Route: 048
  2. ADJUVANT STEROIDS [Suspect]
     Indication: PNEUMOCYSTIS JIROVECI PNEUMONIA

REACTIONS (4)
  - RESPIRATORY FAILURE [None]
  - PNEUMONIA NECROTISING [None]
  - PULMONARY TUBERCULOSIS [None]
  - PNEUMOCYSTIS JIROVECI PNEUMONIA [None]
